FAERS Safety Report 9433182 (Version 3)
Quarter: 2013Q3

REPORT INFORMATION
  Report Type: Spontaneous
  Country: US (occurrence: US)
  Receive Date: 20130731
  Receipt Date: 20130920
  Transmission Date: 20140515
  Serious: Yes (Death, Hospitalization, Other)
  Sender: FDA-Public Use
  Company Number: US-BAXTER-2013BAX029730

PATIENT
  Age: 79 Year
  Sex: Female

DRUGS (1)
  1. DIANEAL LOW CALCIUM [Suspect]
     Indication: PERITONEAL DIALYSIS
     Route: 033
     Dates: start: 20120913

REACTIONS (4)
  - Death [Fatal]
  - Bacterial infection [Recovering/Resolving]
  - Cardiac disorder [Unknown]
  - Peritonitis [Recovered/Resolved]
